FAERS Safety Report 8242537-3 (Version None)
Quarter: 2012Q1

REPORT INFORMATION
  Report Type: 
  Country: None (occurrence: None)
  Receive Date: 20120329
  Receipt Date: 20120319
  Transmission Date: 20120608
  Serious: Yes (Other)
  Sender: FDA-Public Use
  Company Number: PHHY2012BR025330

PATIENT
  Age: 72 Year
  Sex: Female

DRUGS (2)
  1. MIACALCIN [Suspect]
     Indication: OSTEOPOROSIS
     Dosage: 1 DF, QD
     Route: 045
  2. OSCAL 500-D [Suspect]
     Indication: OSTEOPOROSIS
     Dosage: 2 DF, DAILY

REACTIONS (1)
  - FALL [None]
